FAERS Safety Report 5441261-X (Version None)
Quarter: 2007Q3

REPORT INFORMATION
  Report Type: 
  Country: None (occurrence: None)
  Receive Date: 20070901
  Receipt Date: 20070821
  Transmission Date: 20080115
  Serious: Yes (Other)
  Sender: FDA-Public Use
  Company Number: US-PFIZER INC-2007071472

PATIENT
  Sex: Female
  Weight: 61.7 kg

DRUGS (10)
  1. CHANTIX [Suspect]
     Indication: SMOKING CESSATION THERAPY
  2. XANAX [Concomitant]
  3. ACTIVELLA [Concomitant]
  4. ADVAIR DISKUS 100/50 [Concomitant]
  5. LEXAPRO [Concomitant]
  6. DESYREL [Concomitant]
  7. PREVACID [Concomitant]
  8. NEURONTIN [Concomitant]
  9. ALL OTHER THERAPEUTIC PRODUCTS [Concomitant]
  10. TRAMADOL HCL [Concomitant]

REACTIONS (2)
  - DEPRESSION [None]
  - INCORRECT DOSE ADMINISTERED [None]
